FAERS Safety Report 17204218 (Version 1)
Quarter: 2019Q4

REPORT INFORMATION
  Report Type: Spontaneous
  Country: JP (occurrence: JP)
  Receive Date: 20191226
  Receipt Date: 20191226
  Transmission Date: 20200122
  Serious: Yes (Hospitalization)
  Sender: FDA-Public Use
  Company Number: JP-JNJFOC-20191200573

PATIENT
  Age: 70 Year
  Sex: Male

DRUGS (2)
  1. STELARA [Suspect]
     Active Substance: USTEKINUMAB
     Indication: PSORIASIS
     Dosage: USTEKINUMAB(GENETICAL RECOMBINATION):130MG
     Route: 041
  2. STELARA [Suspect]
     Active Substance: USTEKINUMAB
     Route: 058

REACTIONS (1)
  - Pneumonia legionella [Recovered/Resolved]

NARRATIVE: CASE EVENT DATE: 20190805
